FAERS Safety Report 21476823 (Version 2)
Quarter: 2023Q1

REPORT INFORMATION
  Report Type: Report from Study
  Country: US (occurrence: US)
  Receive Date: 20221019
  Receipt Date: 20230214
  Transmission Date: 20230417
  Serious: No
  Sender: FDA-Public Use
  Company Number: US-ABBVIE-4134891

PATIENT
  Sex: Female

DRUGS (1)
  1. IMBRUVICA [Suspect]
     Active Substance: IBRUTINIB
     Indication: Chronic lymphocytic leukaemia
     Route: 048
     Dates: start: 20210817

REACTIONS (5)
  - Pain [Unknown]
  - Fatigue [Unknown]
  - Muscle spasms [Unknown]
  - Rash [Unknown]
  - Abdominal discomfort [Unknown]
